APPROVED DRUG PRODUCT: ATROPINE SULFATE
Active Ingredient: ATROPINE SULFATE
Strength: 1MG/10ML (0.1MG/ML)
Dosage Form/Route: SOLUTION;INTRAVENOUS
Application: A214970 | Product #001 | TE Code: AP
Applicant: MEDEFIL INC
Approved: Nov 4, 2022 | RLD: No | RS: No | Type: RX